FAERS Safety Report 9734597 (Version 2)
Quarter: 2013Q4

REPORT INFORMATION
  Report Type: Report from Study
  Country: US (occurrence: US)
  Receive Date: 20131206
  Receipt Date: 20131218
  Transmission Date: 20140711
  Serious: Yes (Hospitalization, Other)
  Sender: FDA-Public Use
  Company Number: US-ROCHE-1310497

PATIENT
  Age: 67 Year
  Sex: Female
  Weight: 98.97 kg

DRUGS (14)
  1. ACTEMRA [Suspect]
     Indication: RHEUMATOID ARTHRITIS
     Route: 042
     Dates: start: 201302, end: 20130505
  2. ACTEMRA [Suspect]
     Route: 042
     Dates: end: 20130729
  3. ACTEMRA [Suspect]
     Route: 042
     Dates: start: 20130416
  4. ACTEMRA [Suspect]
     Route: 042
     Dates: start: 201302
  5. ACTEMRA [Suspect]
     Dosage: 4Z/KG
     Route: 042
     Dates: start: 201207, end: 201309
  6. ACTEMRA [Suspect]
     Route: 042
     Dates: start: 20130314
  7. ALTACE [Concomitant]
     Route: 048
     Dates: start: 201212
  8. LIPITOR [Concomitant]
     Indication: BLOOD CHOLESTEROL ABNORMAL
     Route: 048
     Dates: start: 20130416
  9. LASIX [Concomitant]
     Indication: LYMPHOEDEMA
  10. FUROSEMIDE [Concomitant]
     Route: 048
     Dates: start: 201111
  11. LANTUS SOLOSTAR [Concomitant]
  12. LEVOTHYROXINE [Concomitant]
  13. AZULFIDINE [Concomitant]
  14. METHOTREXATE [Concomitant]
     Route: 065

REACTIONS (4)
  - Respiratory disorder [Unknown]
  - Haemorrhage [Recovered/Resolved]
  - Platelet count decreased [Recovered/Resolved]
  - Pain in extremity [Recovered/Resolved]
